FAERS Safety Report 8113653-1 (Version None)
Quarter: 2012Q1

REPORT INFORMATION
  Report Type: 
  Country: None (occurrence: None)
  Receive Date: 20120203
  Receipt Date: 20120202
  Transmission Date: 20120608
  Serious: Yes (Other)
  Sender: FDA-Public Use
  Company Number: NL-AMGEN-NLDSP2011057179

PATIENT
  Age: 60 Year
  Sex: Female
  Weight: 65 kg

DRUGS (2)
  1. PREDNISONE TAB [Concomitant]
     Indication: IDIOPATHIC THROMBOCYTOPENIC PURPURA
     Dosage: 10 MG, UNK
     Route: 048
  2. NPLATE [Suspect]
     Indication: IDIOPATHIC THROMBOCYTOPENIC PURPURA
     Dosage: 6 MUG/KG, UNK
     Route: 058
     Dates: start: 20110720

REACTIONS (5)
  - DRUG INEFFECTIVE [None]
  - PLATELET COUNT DECREASED [None]
  - HEADACHE [None]
  - ERYTHROBLAST COUNT ABNORMAL [None]
  - BONE PAIN [None]
